FAERS Safety Report 13789878 (Version 7)
Quarter: 2017Q4

REPORT INFORMATION
  Report Type: Spontaneous
  Country: US (occurrence: US)
  Receive Date: 20170725
  Receipt Date: 20171213
  Transmission Date: 20180320
  Serious: No
  Sender: FDA-Public Use
  Company Number: US-PFIZER INC-2016258559

PATIENT
  Age: 53 Year
  Sex: Female
  Weight: 48.99 kg

DRUGS (9)
  1. PREMARIN [Interacting]
     Active Substance: ESTROGENS, CONJUGATED
     Dosage: 1.25 MG, 1X/DAY (0.625 MG TABLET, 2 TABLETS ONCE A DAY)
     Route: 048
  2. KETOCONAZOLE. [Concomitant]
     Active Substance: KETOCONAZOLE
     Indication: SKIN DISORDER
     Dosage: 2 %, UNK
  3. FLUTICASONE PROPIONATE. [Concomitant]
     Active Substance: FLUTICASONE PROPIONATE
     Indication: HYPERSENSITIVITY
     Dosage: 50 UG, AS NEEDED (2 SPRAYS A DAY)
     Route: 045
     Dates: start: 2016
  4. PREMARIN [Suspect]
     Active Substance: ESTROGENS, CONJUGATED
     Indication: MENOPAUSE
     Dosage: 0.625 MG, 2X/DAY
     Route: 048
  5. PREMARIN [Interacting]
     Active Substance: ESTROGENS, CONJUGATED
     Dosage: 1.25 MG, 1X/DAY (0.625MG TABLET, 2 TABLETS ONCE A DAY)
     Route: 048
  6. SYNTHROID [Interacting]
     Active Substance: LEVOTHYROXINE SODIUM
     Indication: THYROID HORMONE REPLACEMENT THERAPY
     Dosage: 75 UG, UNK
     Route: 048
  7. CLONAZEPAM. [Concomitant]
     Active Substance: CLONAZEPAM
     Indication: MUSCLE SPASMS
     Dosage: UNK, AS NEEDED (TAKES 1/2 TO 1 TABLET NIGHTLY)
  8. VOLTAREN [Concomitant]
     Active Substance: DICLOFENAC SODIUM
     Indication: ARTHRITIS
     Dosage: 1 %, UNK
     Dates: start: 2000
  9. SYNTHROID [Interacting]
     Active Substance: LEVOTHYROXINE SODIUM
     Indication: HYPOTHYROIDISM
     Dosage: 88 UG, 1X/DAY
     Route: 048

REACTIONS (20)
  - Drug interaction [Unknown]
  - Peripheral swelling [Not Recovered/Not Resolved]
  - Mental disorder [Unknown]
  - Nervous system disorder [Unknown]
  - Arthralgia [Unknown]
  - Drug ineffective [Not Recovered/Not Resolved]
  - Rash macular [Unknown]
  - Poor quality sleep [Unknown]
  - Polyuria [Unknown]
  - Product quality issue [Unknown]
  - Muscular weakness [Not Recovered/Not Resolved]
  - Affective disorder [Unknown]
  - Urinary tract infection [Unknown]
  - Circadian rhythm sleep disorder [Unknown]
  - Dry mouth [Unknown]
  - Dry eye [Unknown]
  - Vulvovaginal dryness [Unknown]
  - Pollakiuria [Unknown]
  - Poor quality drug administered [Not Recovered/Not Resolved]
  - Dehydration [Unknown]

NARRATIVE: CASE EVENT DATE: 2005
